FAERS Safety Report 6500722-2 (Version None)
Quarter: 2009Q4

REPORT INFORMATION
  Report Type: 
  Country: None (occurrence: None)
  Receive Date: 20091216
  Receipt Date: 20090121
  Transmission Date: 20100525
  Serious: No
  Sender: FDA-Public Use
  Company Number: A0764470A

PATIENT
  Age: 37 Year
  Sex: Female

DRUGS (1)
  1. COMMIT [Suspect]
     Dates: start: 20081124, end: 20081224

REACTIONS (4)
  - DYSPEPSIA [None]
  - MALAISE [None]
  - OVERDOSE [None]
  - TREMOR [None]
